FAERS Safety Report 15558367 (Version 1)
Quarter: 2018Q4

REPORT INFORMATION
  Report Type: Spontaneous
  Country: JP (occurrence: JP)
  Receive Date: 20181028
  Receipt Date: 20181028
  Transmission Date: 20190205
  Serious: Yes (Other)
  Sender: FDA-Public Use
  Company Number: JP-BAXTER-2018BAX026493

PATIENT
  Age: 70 Year
  Sex: Female

DRUGS (2)
  1. ANAGRELIDE HYDROCHLORIDE HYDRATE [Concomitant]
     Indication: ESSENTIAL THROMBOCYTHAEMIA
     Route: 065
  2. ENDOXAN [Suspect]
     Active Substance: CYCLOPHOSPHAMIDE
     Indication: ESSENTIAL THROMBOCYTHAEMIA
     Route: 048

REACTIONS (3)
  - Disseminated cryptococcosis [Unknown]
  - Condition aggravated [Unknown]
  - Angiocentric lymphoma [Unknown]
